FAERS Safety Report 25467417 (Version 1)
Quarter: 2025Q2

REPORT INFORMATION
  Report Type: Spontaneous
  Country: JP (occurrence: JP)
  Receive Date: 20250623
  Receipt Date: 20250623
  Transmission Date: 20250717
  Serious: Yes (Death, Other)
  Sender: STRIDES
  Company Number: JP-STRIDES ARCOLAB LIMITED-2025SP007457

PATIENT
  Age: 73 Year
  Sex: Male

DRUGS (14)
  1. ETOPOSIDE [Suspect]
     Active Substance: ETOPOSIDE
     Indication: Small cell lung cancer extensive stage
     Route: 065
  2. ETOPOSIDE [Suspect]
     Active Substance: ETOPOSIDE
     Indication: Metastases to liver
     Route: 065
  3. PREDNISOLONE [Suspect]
     Active Substance: PREDNISOLONE
     Indication: Secondary cerebellar degeneration
     Route: 065
  4. PREDNISOLONE [Suspect]
     Active Substance: PREDNISOLONE
     Route: 065
  5. CARBOPLATIN [Suspect]
     Active Substance: CARBOPLATIN
     Indication: Small cell lung cancer extensive stage
     Route: 065
  6. CARBOPLATIN [Suspect]
     Active Substance: CARBOPLATIN
     Indication: Metastases to liver
     Route: 065
  7. AMRUBICIN [Suspect]
     Active Substance: AMRUBICIN
     Indication: Small cell lung cancer extensive stage
     Route: 065
  8. AMRUBICIN [Suspect]
     Active Substance: AMRUBICIN
     Indication: Metastases to liver
  9. IMMUNE GLOBULIN NOS [Suspect]
     Active Substance: IMMUNE GLOBULIN NOS
     Indication: Secondary cerebellar degeneration
     Route: 048
  10. IMMUNE GLOBULIN NOS [Suspect]
     Active Substance: IMMUNE GLOBULIN NOS
     Indication: Small cell lung cancer extensive stage
     Route: 065
  11. IMMUNE GLOBULIN NOS [Suspect]
     Active Substance: IMMUNE GLOBULIN NOS
     Indication: Metastases to liver
  12. DURVALUMAB [Suspect]
     Active Substance: DURVALUMAB
     Indication: Small cell lung cancer extensive stage
     Route: 065
  13. DURVALUMAB [Suspect]
     Active Substance: DURVALUMAB
     Indication: Metastases to liver
     Route: 065
  14. METHYLPREDNISOLONE [Concomitant]
     Active Substance: METHYLPREDNISOLONE
     Indication: Secondary cerebellar degeneration
     Route: 065

REACTIONS (4)
  - Neoplasm progression [Fatal]
  - Metastases to central nervous system [Unknown]
  - Therapy partial responder [Unknown]
  - Off label use [Unknown]
